FAERS Safety Report 19907587 (Version 1)
Quarter: 2021Q4

REPORT INFORMATION
  Report Type: Spontaneous
  Country: CA (occurrence: CA)
  Receive Date: 20211001
  Receipt Date: 20211001
  Transmission Date: 20220303
  Serious: Yes (Hospitalization)
  Sender: FDA-Public Use
  Company Number: CA-TEVA-2021-CA-1959438

PATIENT
  Sex: Male
  Weight: 3 kg

DRUGS (3)
  1. LEVETIRACETAM [Suspect]
     Active Substance: LEVETIRACETAM
     Route: 064
  2. MIRTAZAPINE [Suspect]
     Active Substance: MIRTAZAPINE
     Route: 064
  3. INSULIN NOS [Concomitant]
     Active Substance: INSULIN NOS
     Route: 064

REACTIONS (4)
  - Hypotonia neonatal [Recovered/Resolved]
  - Infant irritability [Recovered/Resolved]
  - Thrombocytopenia [Recovered/Resolved]
  - Foetal exposure during pregnancy [Recovered/Resolved]
